FAERS Safety Report 8394692-2 (Version None)
Quarter: 2012Q2

REPORT INFORMATION
  Report Type: 
  Country: None (occurrence: None)
  Receive Date: 20120530
  Receipt Date: 20120528
  Transmission Date: 20120825
  Serious: Yes (Life-Threatening, Hospitalization, Other)
  Sender: FDA-Public Use
  Company Number: JP-PFIZER INC-2012091772

PATIENT
  Age: 77 Year
  Sex: Female
  Weight: 49 kg

DRUGS (8)
  1. CELEBREX [Suspect]
     Indication: PAIN
     Dosage: 100 MG ONCE DAILY AS NEEDED
     Route: 048
     Dates: start: 20120110, end: 20120101
  2. ONON [Concomitant]
     Indication: RHINITIS ALLERGIC
     Dosage: 250 MG, 2X/DAY
     Route: 048
     Dates: start: 20050309
  3. SPIRONOLACTONE [Suspect]
     Indication: RENAL FAILURE CHRONIC
     Dosage: 25 MG, 1X/DAY
     Route: 048
     Dates: start: 20100704, end: 20120101
  4. DICLOFENAC SODIUM [Concomitant]
     Indication: PAIN
     Dosage: 25 MG ONCE AS NEEDED
     Dates: start: 20120110, end: 20120101
  5. FUROSEMIDE [Suspect]
     Indication: RENAL FAILURE CHRONIC
     Dosage: 20 MG, 1X/DAY
     Route: 048
     Dates: start: 20050817, end: 20120101
  6. LEVOFLOXACIN [Suspect]
     Indication: URINARY TRACT INFECTION
     Dosage: 500 MG, 2X/DAY
     Route: 048
     Dates: start: 20120118, end: 20120118
  7. ALLOPURINOL [Suspect]
     Indication: HYPERURICAEMIA
     Dosage: 100 MG, 1X/DAY
     Route: 048
     Dates: start: 20061225, end: 20120101
  8. LANSOPRAZOLE [Suspect]
     Indication: GASTRIC ULCER
     Dosage: 15 MG, 1X/DAY
     Route: 048
     Dates: start: 20050502, end: 20120101

REACTIONS (8)
  - ERYTHEMA MULTIFORME [None]
  - PLEURAL EFFUSION [None]
  - HYPOPROTEINAEMIA [None]
  - RENAL IMPAIRMENT [None]
  - BLOOD POTASSIUM INCREASED [None]
  - DISSEMINATED INTRAVASCULAR COAGULATION [None]
  - GENERALISED OEDEMA [None]
  - HEPATIC FUNCTION ABNORMAL [None]
